FAERS Safety Report 8662221 (Version 7)
Quarter: 2012Q4

REPORT INFORMATION
  Report Type: 
  Country: US (occurrence: US)
  Receive Date: 20120712
  Receipt Date: 20120924
  Transmission Date: 20130627
  Serious: Yes (Hospitalization, Other)
  Sender: FDA-Public Use
  Company Number: US-GILEAD-2012-0057692

PATIENT
  Sex: Male

DRUGS (3)
  1. LETAIRIS [Suspect]
     Indication: PULMONARY HYPERTENSION
     Dosage: 10 mg, UNK
     Route: 048
     Dates: start: 20120315
  2. LETAIRIS [Suspect]
     Indication: ANTIPHOSPHOLIPID SYNDROME
  3. WARFARIN [Suspect]

REACTIONS (3)
  - Haematoma [Unknown]
  - Subdural haematoma [Unknown]
  - Cerebrovascular accident [Unknown]
